FAERS Safety Report 7540601-5 (Version None)
Quarter: 2011Q2

REPORT INFORMATION
  Report Type: 
  Country: None (occurrence: None)
  Receive Date: 20110610
  Receipt Date: 20110606
  Transmission Date: 20111010
  Serious: Yes (Other)
  Sender: FDA-Public Use
  Company Number: CL-PFIZER INC-2011122411

PATIENT
  Sex: Female

DRUGS (2)
  1. PHENYTOIN SODIUM CAP [Suspect]
     Indication: CONVULSION PROPHYLAXIS
     Dosage: UNK
     Dates: start: 20110531
  2. PHENYTOIN SODIUM CAP [Suspect]
     Indication: PROPHYLAXIS

REACTIONS (2)
  - CONSTIPATION [None]
  - BLOOD PRESSURE INCREASED [None]
